FAERS Safety Report 4718104-2 (Version None)
Quarter: 2005Q3

REPORT INFORMATION
  Report Type: 
  Country: None (occurrence: None)
  Receive Date: 20050720
  Receipt Date: 20050713
  Transmission Date: 20060218
  Serious: Yes (Hospitalization)
  Sender: FDA-Public Use
  Company Number: US-BRISTOL-MYERS SQUIBB COMPANY-13035530

PATIENT
  Age: 58 Year
  Sex: Female
  Weight: 84 kg

DRUGS (1)
  1. METFORMIN HCL [Suspect]

REACTIONS (3)
  - ACUTE RESPIRATORY DISTRESS SYNDROME [None]
  - MENTAL STATUS CHANGES [None]
  - SEPTIC SHOCK [None]
